FAERS Safety Report 8250128-3 (Version None)
Quarter: 2012Q1

REPORT INFORMATION
  Report Type: 
  Country: None (occurrence: None)
  Receive Date: 20120328
  Receipt Date: 20120301
  Transmission Date: 20120608
  Serious: Yes (Hospitalization)
  Sender: FDA-Public Use
  Company Number: QSC-2012-0018

PATIENT
  Age: 11 Month
  Sex: Male

DRUGS (4)
  1. H.P. ACTHAR GEL [Suspect]
     Indication: INFANTILE SPASMS
     Dosage: 20 IU/DIE, QD, INTRAMUSCULAR ; 20, QOD, INTRAMUSCULAR ; 20 IU, BIW, INTRAMUSCULAR
     Route: 030
  2. H.P. ACTHAR GEL [Suspect]
     Indication: INFANTILE SPASMS
     Dosage: 20 IU/DIE, QD, INTRAMUSCULAR ; 20, QOD, INTRAMUSCULAR ; 20 IU, BIW, INTRAMUSCULAR
     Route: 030
  3. H.P. ACTHAR GEL [Suspect]
     Indication: INFANTILE SPASMS
     Dosage: 20 IU/DIE, QD, INTRAMUSCULAR ; 20, QOD, INTRAMUSCULAR ; 20 IU, BIW, INTRAMUSCULAR
     Route: 030
  4. VALPROATE SODIUM [Concomitant]

REACTIONS (16)
  - DIABETES MELLITUS [None]
  - WEIGHT INCREASED [None]
  - LYMPHOPENIA [None]
  - ALKALOSIS HYPOKALAEMIC [None]
  - ENTERITIS [None]
  - DEHYDRATION [None]
  - HIRSUTISM [None]
  - THROMBOCYTOPENIA [None]
  - ELECTROLYTE IMBALANCE [None]
  - HYPERNATRAEMIA [None]
  - CUSHINGOID [None]
  - CONVULSION [None]
  - BRONCHOPNEUMONIA [None]
  - ADRENAL DISORDER [None]
  - HYPERADRENOCORTICISM [None]
  - BLOOD CORTISOL INCREASED [None]
